FAERS Safety Report 6098866-5 (Version None)
Quarter: 2009Q1

REPORT INFORMATION
  Report Type: 
  Country: None (occurrence: None)
  Receive Date: 20090302
  Receipt Date: 20090223
  Transmission Date: 20090719
  Serious: Yes (Hospitalization)
  Sender: FDA-Public Use
  Company Number: B0537193A

PATIENT
  Age: 72 Year
  Sex: Male

DRUGS (6)
  1. SERETIDE [Suspect]
     Dosage: 2PUFF TWICE PER DAY
     Route: 055
     Dates: start: 20070417
  2. VENTOLIN [Suspect]
     Dosage: 100MCG AS REQUIRED
     Route: 055
     Dates: start: 20061204
  3. AMLODIPINE [Concomitant]
     Dosage: 5MG PER DAY
     Route: 048
  4. FRUSEMIDE [Concomitant]
     Route: 048
  5. ISOTARD [Concomitant]
     Route: 048
  6. TRAMADOL HCL [Concomitant]
     Route: 048

REACTIONS (3)
  - BACK PAIN [None]
  - DRY MOUTH [None]
  - DYSPNOEA [None]
